FAERS Safety Report 8310084-6 (Version None)
Quarter: 2012Q2

REPORT INFORMATION
  Report Type: 
  Country: None (occurrence: None)
  Receive Date: 20120425
  Receipt Date: 20120418
  Transmission Date: 20120825
  Serious: Yes (Hospitalization)
  Sender: FDA-Public Use
  Company Number: US-UCBSA-055644

PATIENT
  Sex: Male

DRUGS (1)
  1. CIMZIA [Suspect]

REACTIONS (1)
  - CLAVICLE FRACTURE [None]
